FAERS Safety Report 5026308-7 (Version None)
Quarter: 2006Q2

REPORT INFORMATION
  Report Type: 
  Country: None (occurrence: None)
  Receive Date: 20060426
  Receipt Date: 20060320
  Transmission Date: 20061013
  Serious: Yes (Other)
  Sender: FDA-Public Use
  Company Number: 2006014624

PATIENT
  Sex: Female

DRUGS (2)
  1. LYRICA [Suspect]
     Indication: CERVICOBRACHIAL SYNDROME
     Dosage: 300 MG, (150 MG, 2 IN 1 D) ORAL
     Route: 048
  2. CORTEF [Concomitant]

REACTIONS (1)
  - HALLUCINATION, VISUAL [None]
